FAERS Safety Report 7544498-9 (Version None)
Quarter: 2011Q2

REPORT INFORMATION
  Report Type: 
  Country: None (occurrence: None)
  Receive Date: 20110613
  Receipt Date: 20110607
  Transmission Date: 20111010
  Serious: Yes (Other)
  Sender: FDA-Public Use
  Company Number: US-RB-028715-11

PATIENT
  Age: 26 Year
  Sex: Female

DRUGS (1)
  1. SUBOXONE [Suspect]
     Indication: PRODUCT USED FOR UNKNOWN INDICATION
     Dosage: DOSAGE UNKNOWN.
     Route: 065
     Dates: start: 20110602

REACTIONS (5)
  - VERTIGO [None]
  - SYNCOPE [None]
  - VOMITING [None]
  - HEADACHE [None]
  - EPISTAXIS [None]
